FAERS Safety Report 7096712-4 (Version None)
Quarter: 2010Q4

REPORT INFORMATION
  Report Type: 
  Country: None (occurrence: None)
  Receive Date: 20101111
  Receipt Date: 20091028
  Transmission Date: 20110411
  Serious: No
  Sender: FDA-Public Use
  Company Number: US-KINGPHARMUSA00001-K200901355

PATIENT
  Age: 72 Year
  Sex: Male
  Weight: 81.633 kg

DRUGS (12)
  1. ALTACE [Suspect]
     Indication: CARDIOVASCULAR EVENT PROPHYLAXIS
     Dosage: 2.5 MG, QD
     Route: 048
     Dates: end: 20091001
  2. PLAVIX [Concomitant]
     Indication: CARDIOVASCULAR EVENT PROPHYLAXIS
     Dosage: UNK
  3. ASPIRIN [Concomitant]
     Indication: CARDIOVASCULAR EVENT PROPHYLAXIS
     Dosage: UNK
  4. COREG [Concomitant]
     Indication: CARDIOVASCULAR EVENT PROPHYLAXIS
     Dosage: UNK
  5. LIPITOR [Concomitant]
     Indication: BLOOD CHOLESTEROL INCREASED
     Dosage: UNK
  6. NIASPAN [Concomitant]
     Dosage: UNK
  7. FOLIC ACID [Concomitant]
     Dosage: UNK
  8. FISH OIL [Concomitant]
     Dosage: UNK
  9. GLUCOSAMINE/CHONDROITIN [Concomitant]
     Indication: ARTHROPATHY
     Dosage: UNK
  10. PRILOSEC [Concomitant]
     Indication: DYSPEPSIA
     Dosage: UNK
  11. SUCRALFATE [Concomitant]
     Indication: DYSPEPSIA
     Dosage: UNK
  12. MULTI-VITAMIN [Concomitant]

REACTIONS (6)
  - COUGH [None]
  - FATIGUE [None]
  - HAEMOGLOBIN DECREASED [None]
  - LETHARGY [None]
  - PALLOR [None]
  - VOLUME BLOOD DECREASED [None]
